FAERS Safety Report 4366168-0 (Version None)
Quarter: 2004Q2

REPORT INFORMATION
  Report Type: 
  Country: None (occurrence: None)
  Receive Date: 20040526
  Receipt Date: 20040526
  Transmission Date: 20050107
  Serious: Yes (Other)
  Sender: FDA-Public Use
  Company Number: None

PATIENT
  Age: 76 Year
  Sex: Male
  Weight: 71.9 kg

DRUGS (7)
  1. OXYBUTYNIN [Suspect]
  2. TERAZOSIN HCL [Concomitant]
  3. LORATADINE [Concomitant]
  4. ALBUTEROL/IPRATROP [Concomitant]
  5. SYNTHROID [Concomitant]
  6. ADALAT CC [Concomitant]
  7. DOCUSATE NA [Concomitant]

REACTIONS (2)
  - DRY MOUTH [None]
  - VISION BLURRED [None]
